FAERS Safety Report 5622302-3 (Version None)
Quarter: 2008Q1

REPORT INFORMATION
  Report Type: 
  Country: None (occurrence: None)
  Receive Date: 20080114
  Receipt Date: 20071012
  Transmission Date: 20080703
  Serious: Yes (Hospitalization)
  Sender: FDA-Public Use
  Company Number: A03200706003

PATIENT
  Age: 59 Year
  Sex: Female

DRUGS (6)
  1. PLAVIX [Suspect]
     Indication: CEREBROVASCULAR ACCIDENT
     Dosage: ORAL
     Route: 048
     Dates: start: 20060101, end: 20060901
  2. LEVETIRACETAM [Concomitant]
  3. LAMOTRIGINE [Concomitant]
  4. FENOFIBRATE [Concomitant]
  5. METOPROLOL SUCCINATE [Concomitant]
  6. VALSARTAN [Concomitant]

REACTIONS (8)
  - BLOOD CREATININE INCREASED [None]
  - BLOOD GLUCOSE INCREASED [None]
  - BLOOD LACTATE DEHYDROGENASE INCREASED [None]
  - BLOOD URINE PRESENT [None]
  - CONTUSION [None]
  - HAEMOGLOBIN DECREASED [None]
  - PLATELET COUNT DECREASED [None]
  - THROMBOTIC THROMBOCYTOPENIC PURPURA [None]
